FAERS Safety Report 8859020 (Version 2)
Quarter: 2012Q4

REPORT INFORMATION
  Report Type: 
  Country: US (occurrence: US)
  Receive Date: 20121024
  Receipt Date: 20121203
  Transmission Date: 20130627
  Serious: No
  Sender: FDA-Public Use
  Company Number: US-B.I. PHARMACEUTICALS,INC./RIDGEFIELD-2012-BP-25759BP

PATIENT
  Age: 67 None
  Sex: Female
  Weight: 58 kg

DRUGS (8)
  1. MOBIC [Suspect]
     Indication: TENDONITIS
     Dosage: 15 mg
     Route: 048
     Dates: start: 20120919
  2. BUSPIRONE [Concomitant]
     Indication: ANXIETY
     Dosage: 20 mg
     Route: 048
     Dates: start: 201208
  3. LISINOPRIL/HCTZ [Concomitant]
     Indication: HYPERTENSION
     Route: 048
     Dates: start: 20121002
  4. CRESTOR [Concomitant]
     Indication: BLOOD CHOLESTEROL INCREASED
     Dosage: 5 mg
     Route: 048
     Dates: start: 201208
  5. ZOLOFT [Concomitant]
     Indication: DEPRESSION
     Dosage: 75 mg
     Route: 048
     Dates: start: 201208
  6. COSAMIN DS [Concomitant]
     Indication: OSTEOARTHRITIS
     Route: 048
     Dates: start: 2008
  7. CALCIUM/VITAMIN D [Concomitant]
     Indication: SUPPLEMENTATION THERAPY
     Route: 048
     Dates: start: 2000
  8. MULTIVITAMIN [Concomitant]
     Indication: SUPPLEMENTATION THERAPY
     Route: 048
     Dates: start: 2000

REACTIONS (5)
  - Alopecia [Not Recovered/Not Resolved]
  - Vision blurred [Not Recovered/Not Resolved]
  - Nausea [Recovered/Resolved]
  - Vertigo [Recovered/Resolved]
  - Visual impairment [Not Recovered/Not Resolved]
